FAERS Safety Report 5549851-0 (Version None)
Quarter: 2007Q4

REPORT INFORMATION
  Report Type: 
  Country: None (occurrence: None)
  Receive Date: 20071212
  Receipt Date: 20061221
  Transmission Date: 20080405
  Serious: Yes (Death)
  Sender: FDA-Public Use
  Company Number: JP-BAXTER-2005BH003286

PATIENT
  Age: 56 Year
  Sex: Male
  Weight: 56 kg

DRUGS (35)
  1. EXTRANEAL [Suspect]
     Indication: RENAL FAILURE CHRONIC
     Route: 033
     Dates: start: 20040309, end: 20050401
  2. DIANEAL [Suspect]
     Indication: RENAL FAILURE CHRONIC
     Route: 033
     Dates: start: 19920401, end: 20050401
  3. DIANEAL [Suspect]
     Route: 033
     Dates: start: 19920401, end: 20050401
  4. DIANEAL [Concomitant]
     Indication: DRUG USE FOR UNKNOWN INDICATION
     Route: 033
     Dates: start: 20040309, end: 20050401
  5. DIGOXIN [Concomitant]
     Indication: DRUG USE FOR UNKNOWN INDICATION
     Dosage: DOSE UNIT:UNKNOWN
     Route: 065
  6. ISOSORBIDE DINITRATE [Concomitant]
     Indication: DRUG USE FOR UNKNOWN INDICATION
     Dosage: DOSE UNIT:UNKNOWN
     Route: 065
  7. TEPRENONE [Concomitant]
     Indication: DRUG USE FOR UNKNOWN INDICATION
     Dosage: DOSE UNIT:UNKNOWN
     Route: 065
  8. PIMOBENDAN [Concomitant]
     Indication: DRUG USE FOR UNKNOWN INDICATION
     Dosage: DOSE UNIT:UNKNOWN
     Route: 065
  9. ALLOPURINOL [Concomitant]
     Indication: DRUG USE FOR UNKNOWN INDICATION
     Dosage: DOSE UNIT:UNKNOWN
     Route: 065
  10. ALFACALCIDOL [Concomitant]
     Indication: DRUG USE FOR UNKNOWN INDICATION
     Dosage: DOSE UNIT:UNKNOWN
     Route: 065
  11. ZOPICLONE [Concomitant]
     Indication: DRUG USE FOR UNKNOWN INDICATION
     Dosage: DOSE UNIT:UNKNOWN
     Route: 065
  12. CALCIUM CARBONATE [Concomitant]
     Indication: DRUG USE FOR UNKNOWN INDICATION
     Dosage: DOSE UNIT:UNKNOWN
     Route: 065
  13. SEVELAMER [Concomitant]
     Indication: DRUG USE FOR UNKNOWN INDICATION
     Dosage: DOSE UNIT:UNKNOWN
     Route: 065
  14. OMEPRAZOLE [Concomitant]
     Indication: DRUG USE FOR UNKNOWN INDICATION
     Dosage: DOSE UNIT:UNKNOWN
     Route: 065
  15. BERAPROST [Concomitant]
     Indication: DRUG USE FOR UNKNOWN INDICATION
     Dosage: DOSE UNIT:UNKNOWN
     Route: 065
  16. DIANEAL [Concomitant]
     Indication: HYPERTENSION
     Route: 033
     Dates: end: 20050731
  17. ALFAROL [Concomitant]
     Indication: GASTRITIS
     Route: 048
  18. CYANOCOBALAMIN [Concomitant]
     Indication: HYPERPHOSPHATAEMIA
     Route: 048
  19. NU-LOTAN [Concomitant]
     Indication: IRON DEFICIENCY ANAEMIA
     Route: 048
     Dates: start: 20040908, end: 20050430
  20. NORVASC [Concomitant]
     Indication: HYPERTENSION
     Route: 048
     Dates: start: 20050214
  21. ALOSENN [Concomitant]
     Indication: REFLUX OESOPHAGITIS
     Route: 048
  22. SPO SUBCUTANEOUS INJECTION [Concomitant]
     Indication: NEPHROGENIC ANAEMIA
     Route: 058
     Dates: start: 20040824
  23. DOXAZOSIN MESYLATE [Concomitant]
     Indication: INSOMNIA
     Route: 048
     Dates: start: 20050726
  24. INNOLET 30R [Concomitant]
     Indication: CONSTIPATION
     Route: 058
  25. KETOPROFEN [Concomitant]
     Indication: CONSTIPATION
  26. MYTEAR [Concomitant]
     Indication: CONSTIPATION
     Route: 031
  27. MYCOSPOR [Concomitant]
     Indication: ENTERITIS INFECTIOUS
  28. ALDECIN [Concomitant]
     Indication: ENTERITIS INFECTIOUS
     Dates: start: 20040622
  29. BIOFERMIN [Concomitant]
     Indication: ENTERITIS INFECTIOUS
     Route: 048
  30. RESUTAMIN KOWA [Concomitant]
     Indication: ENTERITIS INFECTIOUS
     Dates: start: 20040715
  31. UREPEARL [Concomitant]
     Indication: ENTERITIS INFECTIOUS
  32. ALYSE N [Concomitant]
     Indication: TINEA INFECTION
     Route: 048
  33. FK [Concomitant]
     Indication: PRURITUS
     Route: 048
  34. L-MENTHOL [Concomitant]
     Indication: PRURITUS
     Route: 048
  35. CLARITIN [Concomitant]
     Indication: NASOPHARYNGITIS
     Route: 048
     Dates: start: 20050108

REACTIONS (2)
  - PERITONITIS BACTERIAL [None]
  - SCLEROSING ENCAPSULATING PERITONITIS [None]
